FAERS Safety Report 8942728 (Version 1)
Quarter: 2012Q4

REPORT INFORMATION
  Report Type: 
  Country: BR (occurrence: BR)
  Receive Date: 20121204
  Receipt Date: 20121204
  Transmission Date: 20130627
  Serious: Yes (Other)
  Sender: FDA-Public Use
  Company Number: BR-PFIZER INC-2012299151

PATIENT
  Age: 86 Year
  Sex: Female
  Weight: 60 kg

DRUGS (8)
  1. DETRUSITOL LA [Suspect]
     Dosage: 4 mg, 1x/day
     Dates: start: 20120329, end: 2012
  2. ATENOLOL [Concomitant]
     Dosage: UNK
  3. CALTRATE [Concomitant]
     Dosage: UNK
  4. DIOVAN (VALSARTAN) [Concomitant]
     Dosage: UNK
  5. LEXAPRO [Concomitant]
     Dosage: UNK
  6. MATERNA 1.60 [Concomitant]
     Dosage: UNK
  7. SOMALGIN CARDIO [Concomitant]
     Dosage: UNK
  8. VICOG [Concomitant]
     Dosage: UNK

REACTIONS (1)
  - Blood pressure increased [Recovering/Resolving]
